FAERS Safety Report 9503982 (Version 4)
Quarter: 2014Q1

REPORT INFORMATION
  Report Type: Spontaneous
  Country: FR (occurrence: FR)
  Receive Date: 20130906
  Receipt Date: 20140213
  Transmission Date: 20141002
  Serious: Yes (Disabling, Other)
  Sender: FDA-Public Use
  Company Number: FR-UCBSA-096977

PATIENT
  Age: 0 Year
  Sex: Male

DRUGS (4)
  1. KEPPRA [Suspect]
     Indication: EPILEPSY
     Route: 064
     Dates: start: 20081220, end: 20090625
  2. LAMICTAL [Concomitant]
     Indication: EPILEPSY
     Route: 064
     Dates: start: 20081008, end: 20090625
  3. TRILEPTAL [Concomitant]
     Indication: EPILEPSY
     Route: 064
     Dates: start: 20081008, end: 20081219
  4. TRILEPTAL [Concomitant]
     Indication: EPILEPSY
     Route: 064
     Dates: start: 20081008, end: 20081219

REACTIONS (8)
  - Microcephaly [Not Recovered/Not Resolved]
  - Abnormal behaviour [Not Recovered/Not Resolved]
  - Self injurious behaviour [Not Recovered/Not Resolved]
  - Psychomotor retardation [Not Recovered/Not Resolved]
  - Dyspraxia [Unknown]
  - Hypertelorism of orbit [Unknown]
  - Prominent epicanthal folds [Unknown]
  - Foetal exposure during pregnancy [Recovered/Resolved]
